FAERS Safety Report 11877295 (Version 1)
Quarter: 2015Q4

REPORT INFORMATION
  Report Type: Report from Study
  Country: US (occurrence: US)
  Receive Date: 20151229
  Receipt Date: 20151229
  Transmission Date: 20160305
  Serious: Yes (Hospitalization)
  Sender: FDA-Public Use
  Company Number: US-MALLINCKRODT-T201502799

PATIENT
  Sex: Male

DRUGS (1)
  1. REPOSITORY CORTICOTROPIN INJECTION [Suspect]
     Active Substance: CORTICOTROPIN
     Indication: GLOMERULONEPHRITIS MEMBRANOUS
     Dosage: 80 UNITS TWICE A WEEK
     Route: 030
     Dates: start: 20150504, end: 20151203

REACTIONS (3)
  - Blood pressure increased [Unknown]
  - Oedema peripheral [Unknown]
  - Haemorrhoidal haemorrhage [Recovered/Resolved]
